FAERS Safety Report 8543818-6 (Version None)
Quarter: 2012Q3

REPORT INFORMATION
  Report Type: 
  Country: None (occurrence: None)
  Receive Date: 20120727
  Receipt Date: 20120718
  Transmission Date: 20120928
  Serious: Yes (Other)
  Sender: FDA-Public Use
  Company Number: GB-JNJFOC-20120708600

PATIENT
  Age: 11 Year
  Sex: Male
  Weight: 30 kg

DRUGS (16)
  1. SYMBICORT [Interacting]
     Route: 065
     Dates: start: 20101001
  2. ALBUTEROL SULATE [Concomitant]
     Indication: PRODUCT USED FOR UNKNOWN INDICATION
     Route: 065
     Dates: start: 20100520
  3. ITRACONAZOLE [Suspect]
     Indication: ASPERGILLOSIS
     Route: 048
     Dates: start: 20120201, end: 20120628
  4. SYMBICORT [Interacting]
     Route: 065
     Dates: start: 20101001
  5. CIPROFLAXACIN [Concomitant]
     Indication: PRODUCT USED FOR UNKNOWN INDICATION
     Route: 048
     Dates: start: 20120627
  6. VITAMIN A AND D [Concomitant]
     Indication: PRODUCT USED FOR UNKNOWN INDICATION
     Route: 048
     Dates: start: 20110921
  7. AZITHROMYCIN [Concomitant]
     Indication: PRODUCT USED FOR UNKNOWN INDICATION
     Route: 048
     Dates: start: 20090319
  8. CREON [Concomitant]
     Indication: PRODUCT USED FOR UNKNOWN INDICATION
     Route: 048
  9. MOVIPREP [Concomitant]
     Indication: PRODUCT USED FOR UNKNOWN INDICATION
     Route: 065
  10. VITAMIN E (TOCOPHERYL ACETATE) [Concomitant]
     Indication: PRODUCT USED FOR UNKNOWN INDICATION
     Route: 048
     Dates: start: 20110921
  11. SYMBICORT [Interacting]
     Indication: CYSTIC FIBROSIS
     Route: 065
     Dates: start: 20120521
  12. SYMBICORT [Interacting]
     Indication: ASTHMA
     Route: 065
     Dates: start: 20120521
  13. OMEPRAZOLE [Concomitant]
     Indication: PRODUCT USED FOR UNKNOWN INDICATION
     Route: 048
  14. DORNASE ALFA [Concomitant]
     Indication: PRODUCT USED FOR UNKNOWN INDICATION
     Route: 065
  15. PHYTONADIONE [Concomitant]
     Indication: PRODUCT USED FOR UNKNOWN INDICATION
     Route: 048
     Dates: start: 20080508
  16. COLISTIMETHATE SODIUM [Concomitant]
     Indication: PRODUCT USED FOR UNKNOWN INDICATION
     Route: 065
     Dates: start: 20120627

REACTIONS (5)
  - FATIGUE [None]
  - BLOOD CORTISOL DECREASED [None]
  - DRUG INTERACTION [None]
  - ADRENAL SUPPRESSION [None]
  - DYSPNOEA [None]
